FAERS Safety Report 9275748 (Version 1)
Quarter: 2013Q2

REPORT INFORMATION
  Report Type: Spontaneous
  Country: US (occurrence: None)
  Receive Date: 20130502
  Receipt Date: 20130502
  Transmission Date: 20140414
  Serious: Yes (Other)
  Sender: FDA-Public Use
  Company Number: None

PATIENT
  Age: 58 Year
  Sex: Male
  Weight: 122.47 kg

DRUGS (10)
  1. NEXIUM [Suspect]
     Indication: OESOPHAGEAL PAIN
     Dates: start: 20130403, end: 20130414
  2. MENS CENTRUM MUTI [Concomitant]
  3. VITAMIN C [Concomitant]
  4. MAG-TAB MAGNESIUM [Concomitant]
  5. VITAMIN E [Concomitant]
  6. STENT (CARDIAC) [Concomitant]
  7. ENALAPRIL [Concomitant]
  8. ENALAPRIL HCTZ [Concomitant]
  9. METMORFIN [Concomitant]
  10. METAPROLOL ER [Concomitant]

REACTIONS (6)
  - Agitation [None]
  - Anxiety [None]
  - Depression [None]
  - Anger [None]
  - Aggression [None]
  - Memory impairment [None]
